FAERS Safety Report 17225012 (Version 1)
Quarter: 2020Q1

REPORT INFORMATION
  Report Type: Spontaneous
  Country: DE (occurrence: DE)
  Receive Date: 20200102
  Receipt Date: 20200102
  Transmission Date: 20200409
  Serious: Yes (Hospitalization)
  Sender: FDA-Public Use
  Company Number: DE-TEVA-2019-DE-1160202

PATIENT
  Age: 60 Year
  Sex: Male

DRUGS (14)
  1. CEFTAZIDIME. [Suspect]
     Active Substance: CEFTAZIDIME
     Dosage: NK MG, ABGESTZT
  2. VICTOZA 6MG/ML SOLUTION FOR INJECTION IN ONE [Concomitant]
     Dosage: 6 MILLIGRAM/MILLILITERS DAILY; 6 MG / TAG, 0-0-1-0
     Route: 058
  3. METAMIZOL [Concomitant]
     Active Substance: METAMIZOLE SODIUM
     Dosage: 1000 MG, 4X
  4. METFORMIN [Concomitant]
     Active Substance: METFORMIN HYDROCHLORIDE
     Dosage: 100 MILLIGRAM DAILY; 1000 MG, 1-0-1-0
  5. COTRIMOXAZOLE [Suspect]
     Active Substance: SULFAMETHOXAZOLE\TRIMETHOPRIM
     Dosage: NK MG, ABGESTZT
  6. HUMINSULIN [Concomitant]
     Active Substance: INSULIN HUMAN
     Dosage: BY SCHEME
  7. ACETYLSALICYLSAURE [Concomitant]
     Active Substance: ASPIRIN
     Dosage: 100 MG, 1-0-0-0
  8. HUMINSULIN BASAL [Concomitant]
     Active Substance: INSULIN NOS
     Dosage: 40 IU (INTERNATIONAL UNIT) DAILY; 40 IE, 0-0-1-0
  9. METOPROLOL. [Concomitant]
     Active Substance: METOPROLOL
     Dosage: 95 MILLIGRAM DAILY; 95 MG, 1-0-1-0
  10. CLOPIDOGREL [Concomitant]
     Active Substance: CLOPIDOGREL BISULFATE
     Dosage: 75 MILLIGRAM DAILY; 75 MG, 1-0-0-0
  11. CLINDAMYCIN. [Suspect]
     Active Substance: CLINDAMYCIN
     Dosage: 600 MG, ABGESETZ
  12. CARBIMAZOLE [Suspect]
     Active Substance: CARBIMAZOLE
     Dosage: 10 MG, 1-0-1-0
  13. RAMIPRIL. [Concomitant]
     Active Substance: RAMIPRIL
     Dosage: 5 MILLIGRAM DAILY; 5 MG, 1-0-0-0
  14. TORASEMID [Concomitant]
     Active Substance: TORSEMIDE
     Dosage: 10 MILLIGRAM DAILY; 10 MG, 1-0-0-0

REACTIONS (9)
  - Abdominal distension [Unknown]
  - Dehydration [Unknown]
  - Abdominal pain [Unknown]
  - Inflammation [Unknown]
  - Nausea [Unknown]
  - Vomiting [Unknown]
  - General physical health deterioration [Unknown]
  - Therapeutic drug monitoring analysis not performed [Unknown]
  - Diarrhoea [Unknown]
